FAERS Safety Report 26011611 (Version 1)
Quarter: 2025Q4

REPORT INFORMATION
  Report Type: Spontaneous
  Country: EU (occurrence: EU)
  Receive Date: 20251107
  Receipt Date: 20251107
  Transmission Date: 20260118
  Serious: Yes (Hospitalization, Other)
  Sender: NOVARTIS
  Company Number: EU-002147023-NVSC2023DE267208

PATIENT
  Sex: Female

DRUGS (16)
  1. COSENTYX [Suspect]
     Active Substance: SECUKINUMAB
     Indication: Psoriatic arthropathy
     Dosage: 150 MG (UP TITRATION)
     Route: 065
     Dates: start: 20220704
  2. COSENTYX [Suspect]
     Active Substance: SECUKINUMAB
     Dosage: 150 MG, Q4W (EVERY 4 WEEKS)
     Route: 065
  3. COSENTYX [Suspect]
     Active Substance: SECUKINUMAB
     Dosage: 300 MG
     Route: 065
     Dates: start: 20230508, end: 20230630
  4. DICLOFENAC [Suspect]
     Active Substance: DICLOFENAC
     Indication: Product used for unknown indication
     Dosage: 100 MG
     Route: 065
     Dates: start: 20181106, end: 20190515
  5. NAPROXEN [Suspect]
     Active Substance: NAPROXEN
     Indication: Psoriatic arthropathy
     Dosage: 500 MG (2 DAYS/WEEK)
     Route: 065
     Dates: start: 20220704, end: 20230630
  6. SIMPONI [Suspect]
     Active Substance: GOLIMUMAB
     Indication: Product used for unknown indication
     Dosage: 50 MG
     Route: 065
     Dates: start: 20190425, end: 20201125
  7. METHOTREXATE SODIUM [Suspect]
     Active Substance: METHOTREXATE SODIUM
     Indication: Product used for unknown indication
     Dosage: 15 MG
     Route: 065
     Dates: start: 20140401
  8. METHOTREXATE SODIUM [Suspect]
     Active Substance: METHOTREXATE SODIUM
     Dosage: 10 MG
     Route: 065
     Dates: start: 20201106, end: 20201201
  9. TALTZ [Suspect]
     Active Substance: IXEKIZUMAB
     Indication: Product used for unknown indication
     Dosage: 80 MG
     Route: 065
     Dates: start: 20210122, end: 20220115
  10. TALTZ [Suspect]
     Active Substance: IXEKIZUMAB
     Dosage: 80 MG
     Route: 065
     Dates: start: 20220315, end: 20220615
  11. ETORICOXIB [Suspect]
     Active Substance: ETORICOXIB
     Indication: Product used for unknown indication
     Dosage: 90 MG
     Route: 065
     Dates: start: 20210331, end: 20220115
  12. CELECOXIB [Suspect]
     Active Substance: CELECOXIB
     Indication: Product used for unknown indication
     Dosage: 200 MG
     Route: 065
     Dates: start: 20210821, end: 20210823
  13. CELECOXIB [Suspect]
     Active Substance: CELECOXIB
     Dosage: 200 MG
     Route: 065
     Dates: start: 20220413, end: 20220615
  14. CELECOXIB [Suspect]
     Active Substance: CELECOXIB
     Indication: Product used for unknown indication
     Dosage: 200 MG
     Route: 065
     Dates: start: 20210821, end: 20210823
  15. CELECOXIB [Suspect]
     Active Substance: CELECOXIB
     Dosage: 200 MG
     Route: 065
     Dates: start: 20220413, end: 20220622
  16. COSENTYX [Concomitant]
     Active Substance: SECUKINUMAB
     Indication: Product used for unknown indication
     Dosage: UNK(PRE FILLED SYRINGE)
     Route: 065

REACTIONS (4)
  - Coronary artery disease [Unknown]
  - Disease recurrence [Recovered/Resolved]
  - Obstructive sleep apnoea syndrome [Unknown]
  - Hypertensive crisis [Unknown]

NARRATIVE: CASE EVENT DATE: 20221011
